FAERS Safety Report 19699377 (Version 2)
Quarter: 2021Q3

REPORT INFORMATION
  Report Type: Spontaneous
  Country: US (occurrence: US)
  Receive Date: 20210813
  Receipt Date: 20210917
  Transmission Date: 20211014
  Serious: No
  Sender: FDA-Public Use
  Company Number: US-BRISTOL-MYERS SQUIBB COMPANY-BMS-2021-080166

PATIENT
  Age: 49 Year
  Sex: Female

DRUGS (1)
  1. ORENCIA [Suspect]
     Active Substance: ABATACEPT
     Indication: BURSITIS
     Dosage: 125 MILLIGRAM, QWK
     Route: 058
     Dates: start: 20190717

REACTIONS (2)
  - Intentional product use issue [Unknown]
  - Hypersensitivity [Unknown]
